FAERS Safety Report 15685783 (Version 1)
Quarter: 2018Q4

REPORT INFORMATION
  Report Type: Spontaneous
  Country: US (occurrence: US)
  Receive Date: 20181123
  Receipt Date: 20181123
  Transmission Date: 20190205
  Serious: Yes (Disabling)
  Sender: FDA-Public Use
  Company Number: None

PATIENT
  Age: 42 Year
  Sex: Female
  Weight: 72.12 kg

DRUGS (2)
  1. HYDROMORPHONE [Suspect]
     Active Substance: HYDROMORPHONE
  2. MEDTRONIC INTRATHECAL PAIN PUMP [Suspect]
     Active Substance: DEVICE

REACTIONS (4)
  - Condition aggravated [None]
  - Drug ineffective [None]
  - Off label use [None]
  - Migraine [None]

NARRATIVE: CASE EVENT DATE: 20171009
